FAERS Safety Report 13151624 (Version 2)
Quarter: 2017Q1

REPORT INFORMATION
  Report Type: Report from Study
  Country: CA (occurrence: CA)
  Receive Date: 20170125
  Receipt Date: 20170213
  Transmission Date: 20170428
  Serious: Yes (Other)
  Sender: FDA-Public Use
  Company Number: CA-BAYER-2017-014151

PATIENT
  Age: 21 Year
  Sex: Female

DRUGS (1)
  1. MIRENA [Suspect]
     Active Substance: LEVONORGESTREL
     Indication: CONTRACEPTION
     Dosage: 20 MCG/24HR, CONT
     Route: 015
     Dates: start: 20170120, end: 20170120

REACTIONS (4)
  - Device difficult to use [None]
  - Inadequate aseptic technique in use of product [None]
  - Uterine cervical laceration [None]
  - Complication of device insertion [None]

NARRATIVE: CASE EVENT DATE: 20170120
